FAERS Safety Report 20563477 (Version 1)
Quarter: 2022Q1

REPORT INFORMATION
  Report Type: Spontaneous
  Country: FR (occurrence: FR)
  Receive Date: 20220308
  Receipt Date: 20220308
  Transmission Date: 20220424
  Serious: Yes (Hospitalization, Other)
  Sender: FDA-Public Use
  Company Number: FR-SUN PHARMACEUTICAL INDUSTRIES LTD-2022RR-328809

PATIENT
  Age: 81 Year
  Sex: Male

DRUGS (1)
  1. METFORMIN [Suspect]
     Active Substance: METFORMIN HYDROCHLORIDE
     Indication: Type 2 diabetes mellitus
     Dosage: UNK
     Route: 065

REACTIONS (5)
  - Haemolytic anaemia [Recovered/Resolved]
  - Thrombocytopenia [Unknown]
  - Iron overload [Recovered/Resolved]
  - Serum ferritin increased [Recovered/Resolved]
  - Transferrin saturation increased [Recovered/Resolved]
